FAERS Safety Report 18262652 (Version 1)
Quarter: 2020Q3

REPORT INFORMATION
  Report Type: Spontaneous
  Country: US (occurrence: US)
  Receive Date: 20200507
  Receipt Date: 20200507
  Transmission Date: 20201103
  Serious: No
  Sender: FDA-Public Use
  Company Number: None

PATIENT
  Sex: Male

DRUGS (2)
  1. INTERFERON ALFA?2B [Suspect]
     Active Substance: INTERFERON ALFA-2B
     Indication: COVID-19
     Dosage: ?          OTHER DOSE:5 MILLION U;?
     Route: 055
  2. LOPINAVIR [Suspect]
     Active Substance: LOPINAVIR
     Route: 048

REACTIONS (3)
  - Product use issue [None]
  - Lung opacity [None]
  - Product use in unapproved indication [None]
